FAERS Safety Report 10745605 (Version 1)
Quarter: 2015Q1

REPORT INFORMATION
  Report Type: Spontaneous
  Country: US (occurrence: None)
  Receive Date: 20150127
  Receipt Date: 20150127
  Transmission Date: 20150721
  Serious: Yes (Disabling)
  Sender: FDA-Public Use
  Company Number: None

PATIENT
  Age: 53 Year
  Sex: Female
  Weight: 81.65 kg

DRUGS (1)
  1. LEVAQUIN [Suspect]
     Active Substance: LEVOFLOXACIN
     Indication: ARTHRITIS INFECTIVE
     Dosage: 1 PILL
     Route: 048

REACTIONS (9)
  - Hypoaesthesia [None]
  - Arthralgia [None]
  - Fatigue [None]
  - Urticaria [None]
  - Musculoskeletal pain [None]
  - Rash pruritic [None]
  - Muscular weakness [None]
  - Headache [None]
  - Joint crepitation [None]

NARRATIVE: CASE EVENT DATE: 20141114
